FAERS Safety Report 8090800-1 (Version None)
Quarter: 2012Q1

REPORT INFORMATION
  Report Type: 
  Country: None (occurrence: None)
  Receive Date: 20120125
  Receipt Date: 20120116
  Transmission Date: 20120608
  Serious: Yes (Life-Threatening)
  Sender: FDA-Public Use
  Company Number: MSTR-NO-1112S-0274

PATIENT
  Age: 59 Year
  Sex: Female

DRUGS (4)
  1. ZOLEDRONIC ACID (ZOMETA) (ZOLEDRONIC ACID) [Concomitant]
  2. METASTRON [Suspect]
     Indication: METASTATIC PAIN
     Dosage: 110 MBQ, SINGLE DOSE, INTRAVENOUS
     Route: 042
     Dates: start: 20111110, end: 20111110
  3. LOXOPROFEN SODIUM HYDRATE (LOXOPROFEN) [Concomitant]
  4. CAPECITABINE [Concomitant]

REACTIONS (1)
  - DISSEMINATED INTRAVASCULAR COAGULATION [None]
